FAERS Safety Report 17848644 (Version 1)
Quarter: 2020Q2

REPORT INFORMATION
  Report Type: Spontaneous
  Country: FR (occurrence: FR)
  Receive Date: 20200602
  Receipt Date: 20200602
  Transmission Date: 20200714
  Serious: Yes (Hospitalization)
  Sender: FDA-Public Use
  Company Number: FR-SA-2020SA137367

PATIENT

DRUGS (4)
  1. MYOZYME [Suspect]
     Active Substance: ALGLUCOSIDASE ALFA
     Indication: GLYCOGEN STORAGE DISEASE TYPE II
     Dosage: 20 MG/KG, Q15D
     Route: 041
     Dates: start: 200703, end: 20200313
  2. MYOZYME [Suspect]
     Active Substance: ALGLUCOSIDASE ALFA
     Dosage: 20 MG/KG, Q15D
     Route: 041
     Dates: start: 20200519
  3. MYOZYME [Suspect]
     Active Substance: ALGLUCOSIDASE ALFA
     Dosage: 20 MG/KG, Q15D
     Route: 041
     Dates: start: 20200505, end: 20200519
  4. COAPROVEL [Concomitant]
     Active Substance: HYDROCHLOROTHIAZIDE\IRBESARTAN
     Indication: HYPERTENSION
     Dosage: UNK UNK, QD, 1-0-0
     Route: 065

REACTIONS (6)
  - Infusion site urticaria [Recovered/Resolved]
  - Rash erythematous [Recovered/Resolved]
  - Intentional dose omission [Unknown]
  - Infusion site paraesthesia [Recovered/Resolved]
  - Infusion site pruritus [Recovered/Resolved]
  - Infusion site papule [Recovered/Resolved]

NARRATIVE: CASE EVENT DATE: 20200519
